FAERS Safety Report 4602681-6 (Version None)
Quarter: 2005Q1

REPORT INFORMATION
  Report Type: 
  Country: None (occurrence: None)
  Receive Date: 20050308
  Receipt Date: 20050214
  Transmission Date: 20050727
  Serious: Yes (Other)
  Sender: FDA-Public Use
  Company Number: 6000002-2005-00147

PATIENT
  Age: 61 Year
  Sex: Female

DRUGS (3)
  1. RIMSO-50 [Suspect]
     Indication: CYSTITIS INTERSTITIAL
     Dosage: SEE H10
  2. NEXIUM [Concomitant]
  3. LOSEC (OMEPRAZOLE) [Concomitant]

REACTIONS (2)
  - CONDITION AGGRAVATED [None]
  - GASTROOESOPHAGEAL REFLUX DISEASE [None]
